FAERS Safety Report 25412073 (Version 1)
Quarter: 2025Q2

REPORT INFORMATION
  Report Type: Spontaneous
  Country: US (occurrence: US)
  Receive Date: 20250609
  Receipt Date: 20250609
  Transmission Date: 20250717
  Serious: Yes (Other)
  Sender: LANTHEUS MEDICAL IMAGING
  Company Number: US-LANTHEUS-LMI-2025-00729

PATIENT
  Age: 83 Year
  Sex: Male
  Weight: 66 kg

DRUGS (1)
  1. DEFINITY [Suspect]
     Active Substance: PERFLUTREN
     Indication: Echocardiogram
     Route: 042
     Dates: start: 20250530, end: 20250530

REACTIONS (8)
  - Eye movement disorder [Recovered/Resolved]
  - Head titubation [Recovered/Resolved]
  - Hyperventilation [Recovered/Resolved]
  - Unresponsive to stimuli [Recovered/Resolved]
  - Presyncope [Recovered/Resolved]
  - Wheezing [Recovered/Resolved]
  - Dyspnoea [Recovered/Resolved]
  - Confusional state [Recovered/Resolved]

NARRATIVE: CASE EVENT DATE: 20250530
